FAERS Safety Report 16145704 (Version 4)
Quarter: 2019Q2

REPORT INFORMATION
  Report Type: Report from Study
  Country: DE (occurrence: DE)
  Receive Date: 20190402
  Receipt Date: 20190426
  Transmission Date: 20190711
  Serious: Yes (Hospitalization)
  Sender: FDA-Public Use
  Company Number: DE-ACTELION-A-CH2019-188203

PATIENT
  Age: 52 Year
  Sex: Male
  Weight: 58.6 kg

DRUGS (14)
  1. PREDNISOLON [Concomitant]
     Active Substance: PREDNISOLONE
     Indication: COLITIS
     Dosage: UNK
     Route: 048
     Dates: end: 20180306
  2. TORASEMID [Concomitant]
     Active Substance: TORSEMIDE
     Indication: PULMONARY ARTERIAL HYPERTENSION
     Dosage: UNK
     Route: 048
     Dates: start: 20190102
  3. MAGNESIUM-DIASPORAL [Concomitant]
     Dosage: 300 MG
     Dates: start: 20190102
  4. TORASEMIDE [Concomitant]
     Active Substance: TORSEMIDE
     Indication: PULMONARY ARTERIAL HYPERTENSION
     Dosage: 10 MG, QD
     Route: 048
     Dates: start: 20190106
  5. ADCIRCA [Concomitant]
     Active Substance: TADALAFIL
     Dosage: 20 MG, QD
     Route: 048
     Dates: start: 20190109
  6. CLEXANE [Concomitant]
     Active Substance: ENOXAPARIN SODIUM
     Indication: PROPHYLAXIS
     Dosage: UNK
     Route: 058
     Dates: start: 20190102, end: 20190110
  7. KREON [Concomitant]
     Active Substance: PANCRELIPASE
     Indication: PANCREATIC FAILURE
     Dosage: UNK
     Route: 048
     Dates: start: 20190111, end: 201903
  8. LEVOFLOXACIN. [Concomitant]
     Active Substance: LEVOFLOXACIN
     Indication: BRONCHITIS
     Dosage: UNK
     Route: 048
     Dates: start: 20190104, end: 20190110
  9. L-THYROXIN [Concomitant]
     Active Substance: LEVOTHYROXINE SODIUM
     Indication: AUTOIMMUNE THYROIDITIS
     Dosage: 25 MCG
     Route: 048
  10. AMPHO-MORONAL [Concomitant]
     Active Substance: AMPHOTERICIN B
     Indication: PROPHYLAXIS
     Dosage: 4 ML, QD
     Route: 048
     Dates: start: 20190110, end: 201903
  11. OPSUMIT [Suspect]
     Active Substance: MACITENTAN
     Indication: PULMONARY ARTERIAL HYPERTENSION
     Dosage: 10 MG, QD
     Route: 048
     Dates: start: 20190110
  12. MAGNESIUM [Concomitant]
     Active Substance: MAGNESIUM
     Dosage: 300 MG, QD
     Route: 048
     Dates: start: 20190102
  13. PANTOPRAZOLE [Concomitant]
     Active Substance: PANTOPRAZOLE
     Indication: PROPHYLAXIS
     Dosage: 20 MG, QD
     Route: 048
     Dates: start: 20190109
  14. CLEXANE [Concomitant]
     Active Substance: ENOXAPARIN SODIUM
     Dosage: UNK
     Route: 058
     Dates: start: 20190328, end: 20190328

REACTIONS (12)
  - Bilirubin conjugated increased [Unknown]
  - Haemolysis [Unknown]
  - Gamma-glutamyltransferase increased [Unknown]
  - Blood alkaline phosphatase increased [Unknown]
  - Immunodeficiency common variable [Unknown]
  - Blood bilirubin increased [Unknown]
  - Confusional state [Not Recovered/Not Resolved]
  - Ammonia increased [Recovered/Resolved]
  - Alanine aminotransferase increased [Unknown]
  - Blood albumin decreased [Unknown]
  - Hepatic encephalopathy [Not Recovered/Not Resolved]
  - Aspartate aminotransferase increased [Unknown]

NARRATIVE: CASE EVENT DATE: 20190110
